FAERS Safety Report 17599285 (Version 2)
Quarter: 2020Q3

REPORT INFORMATION
  Report Type: Spontaneous
  Country: FR (occurrence: FR)
  Receive Date: 20200330
  Receipt Date: 20200824
  Transmission Date: 20201102
  Serious: Yes (Death)
  Sender: FDA-Public Use
  Company Number: FR-CHIESI USA, INC.-FR-2020CHI000169

PATIENT

DRUGS (4)
  1. CUROSURF [Suspect]
     Active Substance: PORACTANT ALFA
     Indication: NEONATAL RESPIRATORY DISTRESS SYNDROME
     Dosage: 240 MG
     Route: 007
     Dates: start: 20200311
  2. VITAMIN K [Concomitant]
     Active Substance: PHYTONADIONE
     Indication: PRODUCT USED FOR UNKNOWN INDICATION
     Dosage: 2 MG, QD
     Dates: start: 20200311
  3. ATROPINE. [Concomitant]
     Active Substance: ATROPINE
     Indication: PRODUCT USED FOR UNKNOWN INDICATION
     Dosage: 108 MG/KG, QD
     Dates: start: 20200311
  4. CAFEINE [Concomitant]
     Active Substance: CAFFEINE
     Indication: PRODUCT USED FOR UNKNOWN INDICATION
     Dosage: 20 MG/KG, QD
     Dates: start: 20200311

REACTIONS (1)
  - Neonatal pneumothorax [Fatal]

NARRATIVE: CASE EVENT DATE: 20200311
